FAERS Safety Report 6647172-6 (Version None)
Quarter: 2010Q1

REPORT INFORMATION
  Report Type: 
  Country: None (occurrence: None)
  Receive Date: 20100323
  Receipt Date: 20100310
  Transmission Date: 20100710
  Serious: Yes (Other)
  Sender: FDA-Public Use
  Company Number: AU-PFIZER INC-2010035850

PATIENT
  Age: 75 Year
  Sex: Male

DRUGS (6)
  1. MORPHINE SULFATE [Suspect]
     Indication: ANALGESIC THERAPY
     Dosage: 240 MG, DAILY
     Route: 042
  2. PIROXICAM [Suspect]
     Dosage: UNK
  3. METHADONE [Suspect]
     Indication: ANALGESIC THERAPY
     Dosage: UNK
  4. PARACETAMOL [Suspect]
     Indication: ANALGESIC THERAPY
     Dosage: UNK
  5. DEXAMETHASONE [Suspect]
     Dosage: UNK
  6. THIETHYLPERAZINE [Suspect]
     Indication: NAUSEA

REACTIONS (2)
  - DRUG INTERACTION [None]
  - MYOCLONUS [None]
